FAERS Safety Report 23931220 (Version 2)
Quarter: 2024Q2

REPORT INFORMATION
  Report Type: Other
  Country: PK (occurrence: None)
  Receive Date: 20240603
  Receipt Date: 20240609
  Transmission Date: 20240716
  Serious: Yes (Death)
  Sender: FDA-Public Use
  Company Number: PK-ROCHE-3574402

PATIENT
  Age: 79 Year
  Sex: Female

DRUGS (1)
  1. HERCEPTIN [Suspect]
     Active Substance: TRASTUZUMAB
     Indication: Breast cancer metastatic
     Dosage: 18 CYCLES
     Route: 058
     Dates: start: 20240119, end: 20240209

REACTIONS (1)
  - Neoplasm malignant [Fatal]
